FAERS Safety Report 8009153-X (Version None)
Quarter: 2011Q4

REPORT INFORMATION
  Report Type: 
  Country: None (occurrence: None)
  Receive Date: 20111221
  Receipt Date: 20111213
  Transmission Date: 20120403
  Serious: Yes (Life-Threatening)
  Sender: FDA-Public Use
  Company Number: 2011MA017718

PATIENT
  Age: 53 Year
  Sex: Female

DRUGS (3)
  1. DICLOFENAC SODIUM [Suspect]
     Indication: BACK PAIN
     Dosage: 100 MG;X1;PO
     Route: 048
     Dates: start: 20111201, end: 20111201
  2. CITALOPRAM [Concomitant]
  3. DICLOFENAC [Concomitant]

REACTIONS (10)
  - SWELLING FACE [None]
  - LOSS OF CONSCIOUSNESS [None]
  - STRIDOR [None]
  - DYSPNOEA [None]
  - THROAT TIGHTNESS [None]
  - HYPOTENSION [None]
  - ERYTHEMA [None]
  - EYE SWELLING [None]
  - MUSCLE TIGHTNESS [None]
  - PRODUCT SUBSTITUTION ISSUE [None]
